FAERS Safety Report 22647321 (Version 5)
Quarter: 2024Q1

REPORT INFORMATION
  Report Type: Report from Study
  Country: CA (occurrence: CA)
  Receive Date: 20230627
  Receipt Date: 20240321
  Transmission Date: 20240410
  Serious: Yes (Other)
  Sender: FDA-Public Use
  Company Number: CA-VER-202300275

PATIENT
  Age: 75 Year
  Sex: Male

DRUGS (7)
  1. TRIPTORELIN PAMOATE [Suspect]
     Active Substance: TRIPTORELIN PAMOATE
     Indication: Prostate cancer
     Dosage: 11.25 MILLIGRAM(S), 1 IN 3 MONTH, POWDER FOR PROLONGED-RELEASE SUSPENSION FOR INJECT
     Route: 030
     Dates: start: 20231206, end: 20231206
  2. TRIPTORELIN PAMOATE [Suspect]
     Active Substance: TRIPTORELIN PAMOATE
     Indication: Prostate cancer
     Dosage: 11.25 MILLIGRAM(S), 1 IN 3 MONTH, POWDER FOR PROLONGED-RELEASE SUSPENSION FOR INJECT
     Route: 030
     Dates: start: 20240306, end: 20240306
  3. TRIPTORELIN PAMOATE [Suspect]
     Active Substance: TRIPTORELIN PAMOATE
     Indication: Prostate cancer
     Dosage: 11.25 MILLIGRAM(S), 1 IN 3 MONTH, POWDER FOR PROLONGED-RELEASE SUSPENSION FOR INJECT
     Route: 030
     Dates: start: 20230909, end: 20230909
  4. TRIPTORELIN PAMOATE [Suspect]
     Active Substance: TRIPTORELIN PAMOATE
     Indication: Prostate cancer
     Route: 030
     Dates: start: 20230608, end: 20230608
  5. TRIPTORELIN PAMOATE [Suspect]
     Active Substance: TRIPTORELIN PAMOATE
     Indication: Prostate cancer
     Route: 030
     Dates: start: 20230316, end: 20230316
  6. BISOPROLOL [Concomitant]
     Active Substance: BISOPROLOL\BISOPROLOL FUMARATE
     Indication: Product used for unknown indication
     Route: 065
  7. UNSPECIFIED INGREDIENT [Concomitant]
     Active Substance: UNSPECIFIED INGREDIENT
     Indication: Product used for unknown indication
     Route: 065

REACTIONS (7)
  - Abdominal pain [Recovering/Resolving]
  - Metastases to lung [Unknown]
  - Pulmonary oedema [Recovering/Resolving]
  - Arthralgia [Unknown]
  - Back pain [Unknown]
  - Musculoskeletal chest pain [Recovering/Resolving]
  - Inappropriate schedule of product administration [Recovered/Resolved]

NARRATIVE: CASE EVENT DATE: 20230316
